FAERS Safety Report 9199411 (Version 1)
Quarter: 2013Q1

REPORT INFORMATION
  Report Type: Spontaneous
  Country: US (occurrence: US)
  Receive Date: 20130329
  Receipt Date: 20130329
  Transmission Date: 20140127
  Serious: No
  Sender: FDA-Public Use
  Company Number: US-009507513-1303USA011865

PATIENT
  Age: 72 Year
  Sex: Female

DRUGS (9)
  1. DESLORATADINE [Suspect]
     Indication: URTICARIA
     Dosage: UNK
     Route: 048
  2. DESLORATADINE [Suspect]
     Indication: FOOD ALLERGY
  3. DESLORATADINE [Suspect]
     Indication: ASTHMA
  4. CLARITIN [Suspect]
     Indication: URTICARIA
     Route: 048
  5. CLARITIN [Suspect]
     Indication: FOOD ALLERGY
  6. CLARITIN [Suspect]
     Indication: ASTHMA
  7. CLARINEX [Concomitant]
     Indication: URTICARIA
     Dosage: 5 MG, QD
     Route: 048
     Dates: start: 1998
  8. CLARINEX [Concomitant]
     Indication: FOOD ALLERGY
  9. CLARINEX [Concomitant]
     Indication: ASTHMA

REACTIONS (1)
  - Drug ineffective [Unknown]
